FAERS Safety Report 24095539 (Version 1)
Quarter: 2024Q3

REPORT INFORMATION
  Report Type: Other
  Country: US (occurrence: US)
  Receive Date: 20240716
  Receipt Date: 20240716
  Transmission Date: 20241017
  Serious: Yes (Life-Threatening, Hospitalization, Other)
  Sender: APPCO PHARMA
  Company Number: US-Appco Pharma LLC-2159162

PATIENT
  Age: 24 Year
  Sex: Male

DRUGS (1)
  1. GLYCOPYRROLATE [Suspect]
     Active Substance: GLYCOPYRROLATE
     Indication: Hyperhidrosis
     Route: 065

REACTIONS (8)
  - Heat stroke [Recovered/Resolved]
  - Thrombocytopenia [Recovered/Resolved]
  - Multiple organ dysfunction syndrome [Recovered/Resolved]
  - Bronchopulmonary aspergillosis [Recovered/Resolved]
  - Disseminated intravascular coagulation [Recovered/Resolved]
  - Rhabdomyolysis [Recovered/Resolved]
  - Liver injury [Recovered/Resolved]
  - Acute kidney injury [Recovered/Resolved]
